FAERS Safety Report 9524653 (Version 1)
Quarter: 2013Q3

REPORT INFORMATION
  Report Type: Spontaneous
  Country: AR (occurrence: AR)
  Receive Date: 20130916
  Receipt Date: 20130916
  Transmission Date: 20140515
  Serious: Yes (Other)
  Sender: FDA-Public Use
  Company Number: AR-PFIZER INC-2013263919

PATIENT
  Age: 72 Year
  Sex: Female

DRUGS (3)
  1. IBUPROFEN [Suspect]
  2. ENBREL [Concomitant]
     Indication: RHEUMATOID ARTHRITIS
     Dosage: 50 MG, WEEKLY
     Dates: start: 20110209
  3. METHOTREXATE SODIUM [Concomitant]
     Indication: RHEUMATOID ARTHRITIS

REACTIONS (1)
  - Angioedema [Not Recovered/Not Resolved]
